FAERS Safety Report 25682410 (Version 1)
Quarter: 2025Q3

REPORT INFORMATION
  Report Type: Spontaneous
  Country: CN (occurrence: CN)
  Receive Date: 20250814
  Receipt Date: 20250814
  Transmission Date: 20251020
  Serious: Yes (Hospitalization, Other)
  Sender: ELI LILLY AND COMPANY
  Company Number: CN-Merck Healthcare KGaA-2025040118

PATIENT
  Age: 68 Year
  Sex: Male
  Weight: 56 kg

DRUGS (3)
  1. ERBITUX [Suspect]
     Active Substance: CETUXIMAB
     Indication: Oropharyngeal cancer
     Route: 041
     Dates: start: 20250719, end: 20250719
  2. DOCETAXEL [Suspect]
     Active Substance: DOCETAXEL
     Indication: Oropharyngeal cancer
     Dosage: 120 MG, DAILY
     Route: 041
     Dates: start: 20250719, end: 20250719
  3. CARBOPLATIN [Suspect]
     Active Substance: CARBOPLATIN
     Indication: Oropharyngeal cancer
     Dosage: 300 MG, DAILY
     Route: 041
     Dates: start: 20250719, end: 20250719

REACTIONS (2)
  - Infection [Recovering/Resolving]
  - Granulocyte count decreased [Recovering/Resolving]

NARRATIVE: CASE EVENT DATE: 20250726
